FAERS Safety Report 8740569 (Version 2)
Quarter: 2012Q4

REPORT INFORMATION
  Report Type: 
  Country: US (occurrence: US)
  Receive Date: 20120823
  Receipt Date: 20121024
  Transmission Date: 20130627
  Serious: No
  Sender: FDA-Public Use
  Company Number: US-009507513-1208USA008396

PATIENT
  Age: 73 Year
  Sex: Female

DRUGS (5)
  1. ZIOPTAN [Suspect]
     Indication: GLAUCOMA
     Dosage: UNK
     Route: 047
     Dates: start: 20120802, end: 20120816
  2. AZOPT [Concomitant]
  3. LUMIGAN [Concomitant]
  4. AMILORIDE [Concomitant]
  5. COZAAR [Concomitant]
     Route: 048

REACTIONS (1)
  - Nasopharyngitis [Unknown]
